FAERS Safety Report 5695204-4 (Version None)
Quarter: 2008Q2

REPORT INFORMATION
  Report Type: 
  Country: None (occurrence: None)
  Receive Date: 20080404
  Receipt Date: 20080326
  Transmission Date: 20081010
  Serious: Yes (Other)
  Sender: FDA-Public Use
  Company Number: JP-PFIZER INC-2008027518

PATIENT
  Sex: Male

DRUGS (3)
  1. GABAPEN [Suspect]
     Indication: GRAND MAL CONVULSION
     Route: 048
  2. DEPAKENE [Concomitant]
  3. TEGRETOL [Concomitant]

REACTIONS (4)
  - ASTHENIA [None]
  - DELUSION [None]
  - GRAND MAL CONVULSION [None]
  - VERTIGO [None]
